FAERS Safety Report 19856897 (Version 2)
Quarter: 2021Q4

REPORT INFORMATION
  Report Type: Report from Study
  Country: FR (occurrence: FR)
  Receive Date: 20210920
  Receipt Date: 20211004
  Transmission Date: 20220303
  Serious: Yes (Hospitalization, Other)
  Sender: FDA-Public Use
  Company Number: FR-TAKEDA-2021TUS057727

PATIENT
  Age: 15 Year
  Sex: Male

DRUGS (12)
  1. TEDUGLUTIDE [Suspect]
     Active Substance: TEDUGLUTIDE
     Indication: Short-bowel syndrome
     Dosage: 1.6 MILLIGRAM, QD
     Route: 065
     Dates: start: 20210301, end: 20210307
  2. TEDUGLUTIDE [Suspect]
     Active Substance: TEDUGLUTIDE
     Indication: Short-bowel syndrome
     Dosage: 1.6 MILLIGRAM, QD
     Route: 065
     Dates: start: 20210301, end: 20210307
  3. TEDUGLUTIDE [Suspect]
     Active Substance: TEDUGLUTIDE
     Indication: Short-bowel syndrome
     Dosage: 1.6 MILLIGRAM, QD
     Route: 065
     Dates: start: 20210301, end: 20210307
  4. TEDUGLUTIDE [Suspect]
     Active Substance: TEDUGLUTIDE
     Indication: Short-bowel syndrome
     Dosage: 1.6 MILLIGRAM, QD
     Route: 065
     Dates: start: 20210301, end: 20210307
  5. TEDUGLUTIDE [Suspect]
     Active Substance: TEDUGLUTIDE
     Dosage: 1.8 MILLIGRAM, QD
     Route: 065
     Dates: start: 20210308
  6. TEDUGLUTIDE [Suspect]
     Active Substance: TEDUGLUTIDE
     Dosage: 1.8 MILLIGRAM, QD
     Route: 065
     Dates: start: 20210308
  7. TEDUGLUTIDE [Suspect]
     Active Substance: TEDUGLUTIDE
     Dosage: 1.8 MILLIGRAM, QD
     Route: 065
     Dates: start: 20210308
  8. TEDUGLUTIDE [Suspect]
     Active Substance: TEDUGLUTIDE
     Dosage: 1.8 MILLIGRAM, QD
     Route: 065
     Dates: start: 20210308
  9. MAGNESIUM [Concomitant]
     Active Substance: MAGNESIUM
     Indication: Magnesium deficiency
     Dosage: 1 INTERNATIONAL UNIT, 1X QD
     Route: 048
     Dates: start: 202101
  10. FUNGIZONE [Concomitant]
     Active Substance: AMPHOTERICIN B
     Indication: Gastrostomy tube site complication
     Dosage: 5 MILLILITER, TID
     Route: 048
     Dates: start: 20201006
  11. ECONAZOLE NITRATE [Concomitant]
     Active Substance: ECONAZOLE NITRATE
     Indication: Gastrostomy tube site complication
     Dosage: 1 DOSAGE FORM, 1X QD
     Route: 061
     Dates: start: 20200929
  12. VENOFER [Concomitant]
     Active Substance: IRON SUCROSE
     Indication: Anaemia prophylaxis
     Dosage: 90 MILLIGRAM, X1 ONE DOSE
     Route: 042
     Dates: start: 20200928, end: 20200928

REACTIONS (2)
  - Overdose [Recovered/Resolved]
  - Suicide attempt [Recovered/Resolved]

NARRATIVE: CASE EVENT DATE: 20210705
